FAERS Safety Report 22020477 (Version 5)
Quarter: 2023Q2

REPORT INFORMATION
  Report Type: Report from Study
  Country: US (occurrence: US)
  Receive Date: 20230222
  Receipt Date: 20230608
  Transmission Date: 20230722
  Serious: Yes (Hospitalization, Other)
  Sender: FDA-Public Use
  Company Number: US-OTSUKA-2023_004362

PATIENT
  Age: 78 Year
  Sex: Female
  Weight: 76.66 kg

DRUGS (2)
  1. CEDAZURIDINE\DECITABINE [Suspect]
     Active Substance: CEDAZURIDINE\DECITABINE
     Indication: Acute myeloid leukaemia
     Dosage: 1 DF (35-100MG), QD ON DAYS 1-5 OF 28 DAYS CYCLE
     Route: 048
     Dates: start: 20230123
  2. CEDAZURIDINE\DECITABINE [Suspect]
     Active Substance: CEDAZURIDINE\DECITABINE
     Indication: Dysplasia
     Dosage: 1 DF (35-100MG), QD ON DAYS 1-5 OF 42 DAYS
     Route: 048

REACTIONS (8)
  - Bronchitis [Unknown]
  - Infection [Unknown]
  - Pneumonia [Unknown]
  - Ligament sprain [Unknown]
  - Malaise [Unknown]
  - Platelet count decreased [Unknown]
  - Product use in unapproved indication [Unknown]
  - Inappropriate schedule of product administration [Unknown]

NARRATIVE: CASE EVENT DATE: 20230602
